FAERS Safety Report 16453049 (Version 1)
Quarter: 2019Q2

REPORT INFORMATION
  Report Type: Spontaneous
  Country: US (occurrence: US)
  Receive Date: 20190619
  Receipt Date: 20190619
  Transmission Date: 20190711
  Serious: No
  Sender: FDA-Public Use
  Company Number: US-SA-2019SA161378

PATIENT
  Age: 62 Year
  Sex: Male
  Weight: 81 kg

DRUGS (1)
  1. AMBIEN [Suspect]
     Active Substance: ZOLPIDEM TARTRATE
     Indication: SLEEP DISORDER
     Dosage: AMBIEN 5MG-2 TABLETS TAKEN BY MOUTH NIGHTLY AS NEEDED FOR SLEEP

REACTIONS (2)
  - Extra dose administered [Unknown]
  - Drug ineffective [Unknown]
